FAERS Safety Report 15925630 (Version 2)
Quarter: 2019Q1

REPORT INFORMATION
  Report Type: Spontaneous
  Country: US (occurrence: US)
  Receive Date: 20190205
  Receipt Date: 20190219
  Transmission Date: 20190417
  Serious: No
  Sender: FDA-Public Use
  Company Number: US-ALLERGAN-1832853US

PATIENT
  Age: 50 Year
  Sex: Male

DRUGS (1)
  1. BOTOX [Suspect]
     Active Substance: ONABOTULINUMTOXINA
     Indication: MIGRAINE
     Dosage: UNK, SINGLE
     Route: 030
     Dates: start: 201806, end: 201806

REACTIONS (4)
  - Product storage error [Unknown]
  - Contusion [Unknown]
  - Therapeutic response decreased [Unknown]
  - Vision blurred [Unknown]
